FAERS Safety Report 5444173-0 (Version None)
Quarter: 2007Q3

REPORT INFORMATION
  Report Type: 
  Country: None (occurrence: None)
  Receive Date: 20070904
  Receipt Date: 20070904
  Transmission Date: 20080115
  Serious: No
  Sender: FDA-Public Use
  Company Number: None

PATIENT
  Age: 6 Year
  Sex: Female
  Weight: 44.7 kg

DRUGS (1)
  1. NEORAL [Suspect]

REACTIONS (1)
  - THERAPEUTIC RESPONSE DECREASED [None]
